FAERS Safety Report 4263367-3 (Version None)
Quarter: 2004Q1

REPORT INFORMATION
  Report Type: 
  Country: None (occurrence: None)
  Receive Date: 20040105
  Receipt Date: 20031113
  Transmission Date: 20041129
  Serious: Yes (Life-Threatening, Hospitalization, Disabling, Other)
  Sender: FDA-Public Use
  Company Number: WAES 0311USA01809

PATIENT

DRUGS (2)
  1. TYLENOL [Suspect]
  2. VIOXX [Suspect]
     Route: 048

REACTIONS (4)
  - HALLUCINATION [None]
  - HEPATIC FAILURE [None]
  - HEPATOTOXICITY [None]
  - OVERDOSE [None]
